FAERS Safety Report 10150386 (Version 2)
Quarter: 2014Q2

REPORT INFORMATION
  Report Type: Spontaneous
  Country: AU (occurrence: AU)
  Receive Date: 20140502
  Receipt Date: 20140502
  Transmission Date: 20141212
  Serious: Yes (Hospitalization)
  Sender: FDA-Public Use
  Company Number: PHBS2000AU00990

PATIENT
  Age: 69 Year
  Sex: Male

DRUGS (1)
  1. COMTAN (ENTACAPONE) [Suspect]
     Indication: PARKINSON^S DISEASE
     Dosage: 4 DF, QID (200 MG)
     Route: 048

REACTIONS (1)
  - Angina pectoris [Unknown]
